FAERS Safety Report 12897983 (Version 1)
Quarter: 2016Q4

REPORT INFORMATION
  Report Type: Spontaneous
  Country: JP (occurrence: JP)
  Receive Date: 20161031
  Receipt Date: 20161031
  Transmission Date: 20170207
  Serious: Yes (Other)
  Sender: FDA-Public Use
  Company Number: JP-BAYER-2016-202133

PATIENT
  Age: 79 Year
  Sex: Male

DRUGS (2)
  1. CLOPIDOGREL [Suspect]
     Active Substance: CLOPIDOGREL BISULFATE
     Dosage: UNK
     Route: 048
  2. BAYASPIRIN [Suspect]
     Active Substance: ASPIRIN

REACTIONS (6)
  - Hepatic function abnormal [Recovering/Resolving]
  - Anaemia [None]
  - Labelled drug-drug interaction medication error [None]
  - Haemorrhagic hepatic cyst [Recovering/Resolving]
  - Hepatic cyst infection [Recovering/Resolving]
  - Hepatitis [Recovering/Resolving]
